FAERS Safety Report 5678953-3 (Version None)
Quarter: 2008Q1

REPORT INFORMATION
  Report Type: 
  Country: None (occurrence: None)
  Receive Date: 20080325
  Receipt Date: 20080314
  Transmission Date: 20080703
  Serious: Yes (Death, Hospitalization)
  Sender: FDA-Public Use
  Company Number: AU-AMGEN-US268406

PATIENT
  Sex: Male

DRUGS (7)
  1. PANITUMUMAB [Suspect]
     Indication: SQUAMOUS CELL CARCINOMA
     Route: 065
     Dates: start: 20080107, end: 20080227
  2. CISPLATIN [Suspect]
     Route: 065
     Dates: end: 20080227
  3. FLUOROURACIL [Suspect]
     Route: 065
     Dates: end: 20080227
  4. ACETAMINOPHEN [Concomitant]
     Route: 065
  5. MS CONTIN [Concomitant]
     Route: 048
  6. SPAN-K [Concomitant]
     Route: 048
  7. CLEXANE [Concomitant]
     Route: 065

REACTIONS (6)
  - ANOREXIA [None]
  - BLOOD SODIUM DECREASED [None]
  - DEHYDRATION [None]
  - DIARRHOEA [None]
  - FATIGUE [None]
  - VOMITING [None]
